FAERS Safety Report 15336051 (Version 3)
Quarter: 2018Q3

REPORT INFORMATION
  Report Type: Spontaneous
  Country: US (occurrence: US)
  Receive Date: 20180830
  Receipt Date: 20180917
  Transmission Date: 20181010
  Serious: No
  Sender: FDA-Public Use
  Company Number: US-PFIZER INC-2018347967

PATIENT
  Age: 17 Year
  Sex: Female

DRUGS (1)
  1. EUCRISA [Suspect]
     Active Substance: CRISABOROLE
     Indication: ECZEMA
     Dosage: UNK, AS NEEDED (1 APPLICATION BID)
     Dates: start: 20180731

REACTIONS (4)
  - Skin infection [Unknown]
  - Dermatitis infected [Not Recovered/Not Resolved]
  - Rash [Unknown]
  - Skin warm [Unknown]

NARRATIVE: CASE EVENT DATE: 20180820
